FAERS Safety Report 16146196 (Version 1)
Quarter: 2019Q2

REPORT INFORMATION
  Report Type: Spontaneous
  Country: US (occurrence: US)
  Receive Date: 20190402
  Receipt Date: 20190402
  Transmission Date: 20190711
  Serious: No
  Sender: FDA-Public Use
  Company Number: US-PFIZER INC-2019138456

PATIENT

DRUGS (2)
  1. AMIODARONE HCL [Suspect]
     Active Substance: AMIODARONE HYDROCHLORIDE
     Dosage: UNK
     Route: 065
  2. MULTAQ [Suspect]
     Active Substance: DRONEDARONE
     Dosage: 400 MG, 2X/DAY
     Route: 065

REACTIONS (1)
  - Deposit eye [Unknown]
